FAERS Safety Report 16648229 (Version 9)
Quarter: 2021Q3

REPORT INFORMATION
  Report Type: Spontaneous
  Country: US (occurrence: US)
  Receive Date: 20190730
  Receipt Date: 20210813
  Transmission Date: 20211014
  Serious: No
  Sender: FDA-Public Use
  Company Number: US-PFIZER INC-2018421499

PATIENT
  Age: 57 Year
  Sex: Female
  Weight: 87.08 kg

DRUGS (24)
  1. ATENOLOL. [Concomitant]
     Active Substance: ATENOLOL
     Dosage: 1?2 TABLETS, 2X/DAY
     Route: 048
  2. IBUPROFEN. [Concomitant]
     Active Substance: IBUPROFEN
     Dosage: 600 MG, AS NEEDED (AS DIRECTED)
     Route: 048
  3. ATENOLOL. [Concomitant]
     Active Substance: ATENOLOL
     Dosage: 1?2 DF, 2X/DAY
     Route: 048
  4. CYCLOBENZAPRINE. [Concomitant]
     Active Substance: CYCLOBENZAPRINE
     Dosage: 100 MG, 3X/DAY
     Route: 048
  5. PULMICORT FLEXHALER [Concomitant]
     Active Substance: BUDESONIDE
     Dosage: 2 DF, 2X/DAY (INHALE 2 PUFFS TWICE A DAY)
     Route: 055
  6. RELPAX [Suspect]
     Active Substance: ELETRIPTAN HYDROBROMIDE
     Indication: MIGRAINE WITHOUT AURA
     Dosage: 50 MG, AS NEEDED (AS DIRECTED AT ONSET OF MIGRAINE AND MAY REPEAT AFTER 2 HOURS IF NEEDED)
     Route: 048
  7. RELPAX [Suspect]
     Active Substance: ELETRIPTAN HYDROBROMIDE
     Dosage: 40 MG, AS NEEDED (AS DIRECTED AT ONSET OF MIGRAINE AND MAY REPEAT AFTER 2 HOURS IF NEEDED)
     Route: 048
  8. RELPAX [Suspect]
     Active Substance: ELETRIPTAN HYDROBROMIDE
     Dosage: 1 DF, UNK
     Route: 048
  9. LEVETIRACETAM. [Concomitant]
     Active Substance: LEVETIRACETAM
     Dosage: 500 MG, 1X/DAY (BEDTIME)
     Route: 048
  10. OMEPRAZOLE. [Concomitant]
     Active Substance: OMEPRAZOLE
     Dosage: 20 MG, 1X/DAY
     Route: 048
  11. POTASSIUM CHLORIDE. [Concomitant]
     Active Substance: POTASSIUM CHLORIDE
     Dosage: 10 MEQ, 1X/DAY
     Route: 048
  12. RELPAX [Suspect]
     Active Substance: ELETRIPTAN HYDROBROMIDE
     Dosage: 1 DF, 2X/DAY
  13. RELPAX [Suspect]
     Active Substance: ELETRIPTAN HYDROBROMIDE
     Indication: STATUS MIGRAINOSUS
     Dosage: 0.5 DF, DAILY (HALF PILL)
  14. METOCLOPRAMIDE. [Concomitant]
     Active Substance: METOCLOPRAMIDE
     Indication: VOMITING
     Dosage: 10 MG, 4X/DAY
  15. ALBUTEROL SULFATE. [Concomitant]
     Active Substance: ALBUTEROL SULFATE
     Dosage: 2 DF, AS NEEDED (EVERY 4?6 HOURS BY INHALATION AS NEEDED)
     Route: 055
  16. CEVIMELINE. [Concomitant]
     Active Substance: CEVIMELINE
     Indication: SJOGREN^S SYNDROME
     Dosage: 30 MG, AS NEEDED (THREE TIMES DAILY AS NEEDED)
     Route: 048
  17. DIAZEPAM. [Concomitant]
     Active Substance: DIAZEPAM
     Dosage: 5 MG, AS NEEDED (THREE TIMES DAILY AS NEEDED)
     Route: 048
  18. EMGALITY [Concomitant]
     Active Substance: GALCANEZUMAB-GNLM
     Dosage: INJECT 2 PENS SUBCUTANEOUSLY FOR THE FIRST MONTH, THEN INJECT 1 PEN MONTHLY THEREAFTER
     Route: 058
  19. FUROSEMIDE. [Concomitant]
     Active Substance: FUROSEMIDE
     Dosage: 20 MG, 1X/DAY (MORNING)
     Route: 048
  20. ATORVASTATIN [Concomitant]
     Active Substance: ATORVASTATIN
     Dosage: 10 MG, 1X/DAY
     Route: 048
  21. RELPAX [Suspect]
     Active Substance: ELETRIPTAN HYDROBROMIDE
     Dosage: 0.5 DF, AS NEEDED (HALF PILL AT ONSET OF MIGRAINE AND MAY REPEAT AFTER 2 HRS X1 IF RECURS)
     Route: 048
  22. RELPAX [Suspect]
     Active Substance: ELETRIPTAN HYDROBROMIDE
     Dosage: 40 MG, AS NEEDED (AS DIRECTED AT ONSET OF MIGRAINE AND MAY REPEAT AFTER 2 HOURS IF NEEDED)
     Route: 048
  23. ADVAIR HFA [Concomitant]
     Active Substance: FLUTICASONE PROPIONATE\SALMETEROL XINAFOATE
     Dosage: 1 DF, 2X/DAY (250MCG?50MCG)
     Route: 055
  24. CLONIDINE HCL [Concomitant]
     Active Substance: CLONIDINE HYDROCHLORIDE
     Dosage: 0.2 MG, 1X/DAY (AT BEDTIME)
     Route: 048

REACTIONS (8)
  - Intentional product misuse [Unknown]
  - Hunger [Unknown]
  - Feeling abnormal [Unknown]
  - Vomiting [Unknown]
  - Off label use [Unknown]
  - Gait disturbance [Unknown]
  - Product use issue [Unknown]
  - Intentional product use issue [Unknown]
